FAERS Safety Report 7964937-9 (Version None)
Quarter: 2011Q4

REPORT INFORMATION
  Report Type: 
  Country: None (occurrence: None)
  Receive Date: 20111208
  Receipt Date: 20111208
  Transmission Date: 20120403
  Serious: No
  Sender: FDA-Public Use
  Company Number: None

PATIENT
  Age: 78 Year
  Sex: Female

DRUGS (1)
  1. NITROFURANTOIN [Suspect]
     Indication: URINARY TRACT INFECTION
     Dosage: 100MG
     Route: 048
     Dates: start: 20110602, end: 20110603

REACTIONS (5)
  - BURNING SENSATION [None]
  - CHILLS [None]
  - HEADACHE [None]
  - GLOSSODYNIA [None]
  - DIZZINESS [None]
